FAERS Safety Report 6161801-5 (Version None)
Quarter: 2009Q2

REPORT INFORMATION
  Report Type: 
  Country: None (occurrence: None)
  Receive Date: 20090421
  Receipt Date: 20090413
  Transmission Date: 20091009
  Serious: Yes (Hospitalization)
  Sender: FDA-Public Use
  Company Number: BR-ROCHE-627759

PATIENT
  Age: 23 Year
  Sex: Female
  Weight: 90 kg

DRUGS (2)
  1. ROACUTAN [Suspect]
     Route: 065
     Dates: start: 20080101, end: 20080101
  2. UNSPECIFIED MEDICATION [Concomitant]
     Indication: POST PROCEDURAL COMPLICATION

REACTIONS (1)
  - NEOPLASM [None]
